FAERS Safety Report 11256719 (Version 1)
Quarter: 2015Q3

REPORT INFORMATION
  Report Type: Spontaneous
  Country: US (occurrence: US)
  Receive Date: 20150709
  Receipt Date: 20150709
  Transmission Date: 20151125
  Serious: No
  Sender: FDA-Public Use
  Company Number: US-PURDUE-USA-2014-0115463

PATIENT
  Sex: Female

DRUGS (1)
  1. BUTRANS [Suspect]
     Active Substance: BUPRENORPHINE
     Indication: RHEUMATOID ARTHRITIS
     Dosage: 10 MCG/HR, WEEKLY
     Route: 062

REACTIONS (9)
  - Application site scab [Unknown]
  - Application site reaction [Unknown]
  - Application site pruritus [Unknown]
  - Insomnia [Unknown]
  - Application site erosion [Unknown]
  - Product adhesion issue [Unknown]
  - Pain [Unknown]
  - Application site rash [Unknown]
  - Application site exfoliation [Unknown]
